FAERS Safety Report 8040094-8 (Version None)
Quarter: 2012Q1

REPORT INFORMATION
  Report Type: 
  Country: None (occurrence: None)
  Receive Date: 20120111
  Receipt Date: 20111221
  Transmission Date: 20120608
  Serious: No
  Sender: FDA-Public Use
  Company Number: US-AMGEN-USASP2011067335

PATIENT
  Age: 20 Year
  Sex: Female

DRUGS (1)
  1. ENBREL [Suspect]
     Indication: PSORIASIS
     Dosage: 50 MG, 2 TIMES/WK
     Dates: start: 20111104

REACTIONS (7)
  - RHINORRHOEA [None]
  - NASOPHARYNGITIS [None]
  - HEADACHE [None]
  - PRODUCTIVE COUGH [None]
  - INJECTION SITE HAEMORRHAGE [None]
  - INSOMNIA [None]
  - COUGH [None]
